FAERS Safety Report 9334347 (Version 1)
Quarter: 2013Q2

REPORT INFORMATION
  Report Type: Spontaneous
  Country: TR (occurrence: None)
  Receive Date: 20130604
  Receipt Date: 20130604
  Transmission Date: 20140414
  Serious: Yes (Other)
  Sender: FDA-Public Use
  Company Number: FK201301832

PATIENT
  Age: 8 Year
  Sex: Male

DRUGS (6)
  1. METHOTREXATE [Suspect]
     Indication: ACUTE LYMPHOCYTIC LEUKAEMIA
  2. METHYLPREDNISOLON [Suspect]
  3. VINCRISTINE [Concomitant]
  4. ASPARAGINASE [Concomitant]
  5. CYCLOPHOSPAMIDE [Concomitant]
  6. DAUNORUBICIN [Concomitant]

REACTIONS (5)
  - Oesophageal stenosis [None]
  - Febrile neutropenia [None]
  - Stomatitis [None]
  - Oral candidiasis [None]
  - Pseudomonas infection [None]
